FAERS Safety Report 4721888-0 (Version None)
Quarter: 2005Q3

REPORT INFORMATION
  Report Type: 
  Country: None (occurrence: None)
  Receive Date: 20050721
  Receipt Date: 20050527
  Transmission Date: 20060218
  Serious: Yes (Other)
  Sender: FDA-Public Use
  Company Number: US-BRISTOL-MYERS SQUIBB COMPANY-12985727

PATIENT
  Age: 78 Year
  Sex: Female
  Weight: 50 kg

DRUGS (4)
  1. COUMADIN [Suspect]
     Indication: ATRIAL FIBRILLATION
     Dosage: 7.5MG;3XWK AND 5MG;4XWK STARTING IN APR-2005, 7.5 MG;4XWK AND 5MG;3XWK STARTING THE WEEK OF 16MAY05
     Dates: start: 20050406
  2. ATENOLOL [Concomitant]
  3. SYNTHROID [Concomitant]
  4. LASIX [Concomitant]

REACTIONS (1)
  - PROTHROMBIN TIME SHORTENED [None]
